FAERS Safety Report 6568507-9 (Version None)
Quarter: 2010Q1

REPORT INFORMATION
  Report Type: 
  Country: None (occurrence: None)
  Receive Date: 20100203
  Receipt Date: 20100127
  Transmission Date: 20100710
  Serious: Yes (Other)
  Sender: FDA-Public Use
  Company Number: D0066249A

PATIENT
  Age: 51 Year
  Sex: Female

DRUGS (2)
  1. ARIXTRA [Suspect]
     Indication: DEEP VEIN THROMBOSIS
     Dosage: 7.5MG UNKNOWN
     Route: 065
     Dates: start: 20100105
  2. BELOC ZOK [Concomitant]
     Dosage: 95MG PER DAY
     Route: 065

REACTIONS (2)
  - MENORRHAGIA [None]
  - THYROID HAEMORRHAGE [None]
